FAERS Safety Report 16028987 (Version 1)
Quarter: 2019Q2

REPORT INFORMATION
  Report Type: Spontaneous
  Country: US (occurrence: US)
  Receive Date: 20190301
  Receipt Date: 20190301
  Transmission Date: 20190711
  Serious: No
  Sender: FDA-Public Use
  Company Number: None

PATIENT
  Age: 39 Year
  Sex: Female
  Weight: 42.75 kg

DRUGS (2)
  1. ETODOLAC. [Suspect]
     Active Substance: ETODOLAC
     Indication: MUSCLE STRAIN
     Dosage: ?          QUANTITY:2 TABLET(S);?
     Route: 048
  2. METHOCARBAMOL. [Suspect]
     Active Substance: METHOCARBAMOL

REACTIONS (1)
  - Drug-disease interaction [None]
